FAERS Safety Report 5171306-6 (Version None)
Quarter: 2006Q4

REPORT INFORMATION
  Report Type: 
  Country: None (occurrence: None)
  Receive Date: 20061207
  Receipt Date: 20061207
  Transmission Date: 20070319
  Serious: Yes (Life-Threatening, Other)
  Sender: FDA-Public Use
  Company Number: None

PATIENT
  Sex: Male
  Weight: 90.7194 kg

DRUGS (12)
  1. GEMFIBROZIL [Suspect]
     Indication: BLOOD TRIGLYCERIDES INCREASED
     Dosage: 600 MG BID PO
     Route: 048
     Dates: start: 20060821, end: 20060913
  2. WARFARIN SODIUM [Suspect]
     Indication: ATRIAL FIBRILLATION
     Dosage: 6 MG WEEKLY PO
     Route: 048
     Dates: start: 20050301
  3. SPIRONOLACTONE [Concomitant]
  4. DIGITEK [Concomitant]
  5. FUROSEMIDE [Concomitant]
  6. COREG [Concomitant]
  7. HYDRALAZINE HCL [Concomitant]
  8. ISOSOBIDE MONO [Concomitant]
  9. AMIODARONE HCL [Concomitant]
  10. CALCITRIOL [Concomitant]
  11. ASPIRIN [Concomitant]
  12. GLIPIZIDE [Concomitant]

REACTIONS (4)
  - BLOOD TRIGLYCERIDES INCREASED [None]
  - DRUG INTERACTION [None]
  - EPISTAXIS [None]
  - INTERNATIONAL NORMALISED RATIO INCREASED [None]
